FAERS Safety Report 19036874 (Version 1)
Quarter: 2021Q1

REPORT INFORMATION
  Report Type: Spontaneous
  Country: US (occurrence: US)
  Receive Date: 20210321
  Receipt Date: 20210321
  Transmission Date: 20210420
  Serious: Yes (Life-Threatening, Hospitalization)
  Sender: FDA-Public Use
  Company Number: None

PATIENT
  Age: 77 Year
  Sex: Female
  Weight: 63 kg

DRUGS (2)
  1. PROLIA [Suspect]
     Active Substance: DENOSUMAB
     Indication: OSTEOPOROSIS
  2. MODERNA COVID?19 VACCINE [Suspect]
     Active Substance: CX-024414

REACTIONS (5)
  - Pruritus [None]
  - Malaise [None]
  - Blood pressure increased [None]
  - Hot flush [None]
  - Asthenia [None]

NARRATIVE: CASE EVENT DATE: 20210304
